FAERS Safety Report 5633052-1 (Version None)
Quarter: 2008Q1

REPORT INFORMATION
  Report Type: 
  Country: None (occurrence: None)
  Receive Date: 20080214
  Receipt Date: 20080129
  Transmission Date: 20080703
  Serious: Yes (Hospitalization)
  Sender: FDA-Public Use
  Company Number: 2008JP000068

PATIENT
  Age: 63 Year
  Sex: Female
  Weight: 41 kg

DRUGS (14)
  1. FUNGUARD(MICAFUNGIN) INJECTION [Suspect]
     Indication: BRONCHOPULMONARY ASPERGILLOSIS
     Dosage: 300 MG, UID/QD, IV DRIP
     Route: 041
     Dates: start: 20071231, end: 20080107
  2. MEROPENEM(MEROPENEM) INJECTION [Suspect]
     Indication: PNEUMONIA
     Dosage: 0.5 G, TID, IV DRIP
     Route: 041
     Dates: start: 20071231, end: 20080107
  3. ADONA (CARBAZOCHROME SODIUM SULFONATE) INJECTION [Concomitant]
  4. TRANSAMIN (TRANEXAMIC ACID) INJECTION [Concomitant]
  5. KLARICID (CLARITHROMYCIN) TABLET [Concomitant]
  6. LEVOFLOXACIN [Concomitant]
  7. ESANBUTOL (ETHAMBUTOL) TABLET [Concomitant]
  8. RIMACTANE (RIFAMPICIN) CACHET [Concomitant]
  9. RIFADIN [Concomitant]
  10. KANAMYCIN SULFATE (KANAMYCIN SULFATE) INJECTION [Concomitant]
  11. SELBEX (TEPRENONE) CAPSULE [Concomitant]
  12. LANSOPRAZOLE [Concomitant]
  13. NOVORAPID (INSULIN ASPART) [Concomitant]
  14. PENFILL N (INSULIN HUMAN INJECTION, ISOPHANE) [Concomitant]

REACTIONS (1)
  - INTERSTITIAL LUNG DISEASE [None]
